FAERS Safety Report 18607329 (Version 1)
Quarter: 2020Q4

REPORT INFORMATION
  Report Type: Spontaneous
  Country: DE (occurrence: DE)
  Receive Date: 20201211
  Receipt Date: 20201211
  Transmission Date: 20210114
  Serious: Yes (Other)
  Sender: FDA-Public Use
  Company Number: NVSC2020DE320637

PATIENT
  Age: 58 Year

DRUGS (3)
  1. ARAVA [Suspect]
     Active Substance: LEFLUNOMIDE
     Indication: PRODUCT USED FOR UNKNOWN INDICATION
     Dosage: UNK
     Route: 065
     Dates: start: 200910, end: 201003
  2. METHOTREXATE SODIUM. [Suspect]
     Active Substance: METHOTREXATE SODIUM
     Indication: PRODUCT USED FOR UNKNOWN INDICATION
     Dosage: UNK
     Route: 065
     Dates: start: 200902, end: 201003
  3. ROACTEMRA [Suspect]
     Active Substance: TOCILIZUMAB
     Indication: PRODUCT USED FOR UNKNOWN INDICATION
     Dosage: UNK (3X)
     Route: 065
     Dates: start: 200907, end: 200910

REACTIONS (24)
  - Natural killer cell count decreased [Unknown]
  - Apathy [Unknown]
  - Larsen syndrome [Unknown]
  - T-lymphocyte count increased [Unknown]
  - Leukocytosis [Unknown]
  - Bacterial infection [Unknown]
  - Cutaneous vasculitis [Unknown]
  - Blood immunoglobulin G decreased [Unknown]
  - Lymphopenia [Unknown]
  - B-lymphocyte count decreased [Unknown]
  - CD4/CD8 ratio increased [Unknown]
  - Fatigue [Unknown]
  - Taste disorder [Unknown]
  - C-reactive protein increased [Unknown]
  - Reticulocyte count decreased [Unknown]
  - Arthropathy [Unknown]
  - Headache [Unknown]
  - Drug ineffective [Unknown]
  - Hypochromic anaemia [Unknown]
  - Vertigo [Unknown]
  - Dizziness [Unknown]
  - T-lymphocyte count decreased [Unknown]
  - Musculoskeletal stiffness [Unknown]
  - Decreased appetite [Unknown]

NARRATIVE: CASE EVENT DATE: 2009
